FAERS Safety Report 6903227-X (Version None)
Quarter: 2010Q3

REPORT INFORMATION
  Report Type: 
  Country: None (occurrence: None)
  Receive Date: 20100803
  Receipt Date: 20080628
  Transmission Date: 20110219
  Serious: No
  Sender: FDA-Public Use
  Company Number: US-PFIZER INC-2008028794

PATIENT
  Sex: Female
  Weight: 106.1 kg

DRUGS (15)
  1. LYRICA [Suspect]
     Indication: HERPES ZOSTER
     Route: 048
     Dates: start: 20080326
  2. LYRICA [Suspect]
     Indication: FIBROMYALGIA
  3. LAMICTAL [Concomitant]
  4. LEVOXYL [Concomitant]
  5. INDERAL [Concomitant]
  6. SEROQUEL [Concomitant]
  7. WARFARIN SODIUM [Concomitant]
  8. MORPHINE SULFATE [Concomitant]
  9. VICODIN [Concomitant]
  10. PROTONIX [Concomitant]
  11. SOMA [Concomitant]
  12. NORTRIPTYLINE [Concomitant]
  13. REQUIP [Concomitant]
  14. MELATONIN [Concomitant]
  15. STOOL SOFTENER [Concomitant]

REACTIONS (16)
  - BALANCE DISORDER [None]
  - CONFUSIONAL STATE [None]
  - COORDINATION ABNORMAL [None]
  - DIZZINESS [None]
  - FLUID RETENTION [None]
  - GAIT DISTURBANCE [None]
  - HEADACHE [None]
  - HYPERPHAGIA [None]
  - ILL-DEFINED DISORDER [None]
  - INFECTION [None]
  - MEMORY IMPAIRMENT [None]
  - MENTAL IMPAIRMENT [None]
  - SOMNOLENCE [None]
  - SPEECH DISORDER [None]
  - UNEVALUABLE EVENT [None]
  - WEIGHT INCREASED [None]
